FAERS Safety Report 7489120-5 (Version None)
Quarter: 2011Q2

REPORT INFORMATION
  Report Type: 
  Country: None (occurrence: None)
  Receive Date: 20110518
  Receipt Date: 20110505
  Transmission Date: 20111010
  Serious: Yes (Death, Other)
  Sender: FDA-Public Use
  Company Number: US-BAYER-201022327NA

PATIENT
  Age: 27 Year
  Sex: Female
  Weight: 115.19 kg

DRUGS (4)
  1. YASMIN [Suspect]
     Indication: ORAL CONTRACEPTION
     Dosage: UNK UNK, QD
     Route: 048
     Dates: start: 20070901, end: 20080216
  2. FUROSEMIDE [Concomitant]
     Dosage: 20 MG, UNK
     Route: 048
     Dates: start: 20041023
  3. KLOR-CON M20 [Concomitant]
     Dosage: UNK
     Route: 048
     Dates: start: 20071023
  4. LEXAPRO [Concomitant]
     Dosage: 10 MG, UNK
     Route: 048
     Dates: start: 20080103

REACTIONS (1)
  - PULMONARY EMBOLISM [None]
